FAERS Safety Report 6032492-9 (Version None)
Quarter: 2009Q1

REPORT INFORMATION
  Report Type: 
  Country: None (occurrence: None)
  Receive Date: 20090109
  Receipt Date: 20080918
  Transmission Date: 20090719
  Serious: No
  Sender: FDA-Public Use
  Company Number: A0749104A

PATIENT
  Sex: Female

DRUGS (2)
  1. TYKERB [Suspect]
     Indication: DRUG USE FOR UNKNOWN INDICATION
     Route: 048
     Dates: start: 20080915
  2. NO CONCURRENT MEDICATIONS [Concomitant]

REACTIONS (3)
  - ERYTHEMA [None]
  - FATIGUE [None]
  - PARAESTHESIA [None]
